FAERS Safety Report 20068337 (Version 1)
Quarter: 2021Q4

REPORT INFORMATION
  Report Type: Spontaneous
  Country: US (occurrence: None)
  Receive Date: 20211112
  Receipt Date: 20211112
  Transmission Date: 20220303
  Serious: Yes (Hospitalization, Other)
  Sender: FDA-Public Use
  Company Number: None

PATIENT
  Age: 35 Year
  Sex: Female
  Weight: 67.5 kg

DRUGS (1)
  1. NP THYROID [Suspect]
     Active Substance: LEVOTHYROXINE\LIOTHYRONINE
     Indication: Hypothyroidism
     Dosage: OTHER QUANTITY : 1 TABLET(S);?
     Route: 048
     Dates: start: 20210819, end: 20211109

REACTIONS (11)
  - Dizziness [None]
  - Presyncope [None]
  - Palpitations [None]
  - Nervousness [None]
  - Panic attack [None]
  - Anxiety [None]
  - Paraesthesia [None]
  - Balance disorder [None]
  - Visual impairment [None]
  - Monoplegia [None]
  - Facial paralysis [None]

NARRATIVE: CASE EVENT DATE: 20210902
